FAERS Safety Report 9890836 (Version 2)
Quarter: 2014Q1

REPORT INFORMATION
  Report Type: Not Available
  Country: NL (occurrence: NL)
  Receive Date: 20140212
  Receipt Date: 20140224
  Transmission Date: 20141002
  Serious: Yes (Hospitalization, Other)
  Sender: FDA-Public Use
  Company Number: NL-ASTELLAS-2014EU001132

PATIENT
  Age: 65 Year
  Sex: Male
  Weight: 124 kg

DRUGS (9)
  1. ENZALUTAMIDE [Suspect]
     Indication: PROSTATE CANCER
     Dosage: 40 MG, UID/QD
     Route: 048
     Dates: start: 20130928, end: 20131128
  2. CIPROFLOXACIN                      /00697202/ [Concomitant]
     Dosage: 500 MG, BID
     Route: 065
  3. PANTOPRAZOL [Concomitant]
     Dosage: 40 MG, UID/QD
     Route: 065
  4. TAMSULOSIN [Concomitant]
     Dosage: 0.4 MG, UID/QD
     Route: 065
  5. METOPROLOL                         /00376903/ [Concomitant]
     Dosage: 100 MG, BID
     Route: 065
  6. AMLODIPINE                         /00972402/ [Concomitant]
     Dosage: 5 MG, UID/QD
     Route: 065
  7. LYRICA [Concomitant]
     Dosage: 75 MG, BID
     Route: 065
  8. DICLOFENAC                         /00372302/ [Concomitant]
     Dosage: 50 MG, TID
     Route: 065
  9. UBRETID [Concomitant]
     Dosage: 5 MG, UID/QD
     Route: 065

REACTIONS (5)
  - Myoclonus [Recovered/Resolved]
  - Dehydration [Recovered/Resolved]
  - Hypotension [Recovered/Resolved]
  - Bacteraemia [Recovered/Resolved]
  - Renal disorder [Recovered/Resolved]
